FAERS Safety Report 7094597-3 (Version None)
Quarter: 2010Q4

REPORT INFORMATION
  Report Type: 
  Country: None (occurrence: None)
  Receive Date: 20101110
  Receipt Date: 20101101
  Transmission Date: 20110411
  Serious: Yes (Hospitalization, Other)
  Sender: FDA-Public Use
  Company Number: US-ROCHE-718929

PATIENT
  Sex: Male
  Weight: 66.7 kg

DRUGS (2)
  1. ACCUTANE [Suspect]
     Indication: ACNE
     Route: 065
     Dates: start: 19970703
  2. ACCUTANE [Suspect]
     Route: 065
     Dates: start: 19970807, end: 19980501

REACTIONS (19)
  - ABDOMINAL PAIN [None]
  - ANAEMIA [None]
  - BACK PAIN [None]
  - COLITIS ULCERATIVE [None]
  - DEHYDRATION [None]
  - DIABETES MELLITUS [None]
  - GASTROENTERITIS [None]
  - GASTROINTESTINAL INJURY [None]
  - GASTROOESOPHAGEAL REFLUX DISEASE [None]
  - HAEMORRHOIDS [None]
  - NAUSEA [None]
  - NEPHROLITHIASIS [None]
  - ORAL HERPES [None]
  - POLYCYTHAEMIA [None]
  - POUCHITIS [None]
  - RECTAL HAEMORRHAGE [None]
  - RENAL FAILURE [None]
  - SMALL INTESTINAL OBSTRUCTION [None]
  - UNEVALUABLE EVENT [None]
